FAERS Safety Report 23427862 (Version 2)
Quarter: 2024Q1

REPORT INFORMATION
  Report Type: Spontaneous
  Country: ZA (occurrence: ZA)
  Receive Date: 20240122
  Receipt Date: 20240131
  Transmission Date: 20240409
  Serious: No
  Sender: FDA-Public Use
  Company Number: ZA-BAYER-2024A011747

PATIENT
  Age: 40 Year

DRUGS (1)
  1. EYLEA [Suspect]
     Active Substance: AFLIBERCEPT
     Indication: Retinal vein occlusion
     Dosage: STRENGTH; 40 MG/ML

REACTIONS (1)
  - Vitreous floaters [Unknown]
